FAERS Safety Report 15668318 (Version 2)
Quarter: 2018Q4

REPORT INFORMATION
  Report Type: Spontaneous
  Country: RU (occurrence: RU)
  Receive Date: 20181129
  Receipt Date: 20181129
  Transmission Date: 20190205
  Serious: Yes (Hospitalization, Other)
  Sender: FDA-Public Use
  Company Number: PHHY2018RU155926

PATIENT
  Age: 6 Year
  Sex: Male

DRUGS (7)
  1. INFLIXIMAB [Concomitant]
     Active Substance: INFLIXIMAB
     Indication: MENINGITIS
     Route: 065
  2. SULTASIN [Concomitant]
     Indication: MENINGITIS
     Dosage: UNK
     Route: 065
  3. PREDNISOLONE. [Suspect]
     Active Substance: PREDNISOLONE
     Indication: MENINGITIS
     Dosage: 10 MG, QD (DOSE REDUCED)
     Route: 048
  4. ACYCLOVIR. [Concomitant]
     Active Substance: ACYCLOVIR
     Indication: MENINGITIS ASEPTIC
     Route: 065
  5. ANAKINRA [Concomitant]
     Active Substance: ANAKINRA
     Dosage: 200 MG, QD
     Route: 065
     Dates: start: 20170118
  6. PREDNISOLONE. [Suspect]
     Active Substance: PREDNISOLONE
     Dosage: 3.75 MG, QD
     Route: 065
  7. ANAKINRA [Concomitant]
     Active Substance: ANAKINRA
     Indication: MENINGITIS
     Dosage: 100 MG,(4 MG/KG) QD
     Route: 065
     Dates: start: 20170118, end: 20170201

REACTIONS (12)
  - Meningeal disorder [Recovering/Resolving]
  - Disease recurrence [Recovering/Resolving]
  - Seizure [Recovering/Resolving]
  - C-reactive protein increased [Recovering/Resolving]
  - Pain [Recovering/Resolving]
  - Meningitis [Recovering/Resolving]
  - Headache [Recovering/Resolving]
  - Pyrexia [Unknown]
  - Vomiting [Recovering/Resolving]
  - Coma [Recovering/Resolving]
  - Acute phase reaction [Recovering/Resolving]
  - Photophobia [Recovering/Resolving]

NARRATIVE: CASE EVENT DATE: 201611
